FAERS Safety Report 7363734-5 (Version None)
Quarter: 2011Q1

REPORT INFORMATION
  Report Type: 
  Country: None (occurrence: None)
  Receive Date: 20110321
  Receipt Date: 20110307
  Transmission Date: 20110831
  Serious: Yes (Hospitalization, Other)
  Sender: FDA-Public Use
  Company Number: JP-PAR PHARMACEUTICAL, INC-2011SCPR002675

PATIENT
  Age: 80 Year
  Sex: Male

DRUGS (4)
  1. DEXAMETHASONE [Suspect]
     Indication: PROSTATE CANCER
     Dosage: UNK MG, QD
     Route: 065
  2. DOCETAXEL [Suspect]
     Indication: PROSTATE CANCER
     Dosage: UNK
     Route: 065
  3. DEXAMETHASONE [Suspect]
     Dosage: 1 MG, QD
     Route: 065
     Dates: start: 20090601
  4. ESTRAMUSTINE [Suspect]
     Indication: PROSTATE CANCER
     Dosage: UNK
     Route: 065

REACTIONS (3)
  - HYPOPHAGIA [None]
  - ANAEMIA [None]
  - NICOTINIC ACID DEFICIENCY [None]
